FAERS Safety Report 6860221-5 (Version None)
Quarter: 2010Q3

REPORT INFORMATION
  Report Type: 
  Country: None (occurrence: None)
  Receive Date: 20100715
  Receipt Date: 20100528
  Transmission Date: 20110219
  Serious: Yes (Hospitalization)
  Sender: FDA-Public Use
  Company Number: AMI0021562

PATIENT
  Age: 56 Year
  Sex: Male

DRUGS (12)
  1. TIMOPTIC [Suspect]
     Indication: OCULAR HYPERTENSION
     Dosage: BID - 046
     Dates: start: 20100415, end: 20100429
  2. TIMOPTIC [Suspect]
     Indication: OPEN ANGLE GLAUCOMA
     Dosage: BID - 046
     Dates: start: 20100415, end: 20100429
  3. TIMOPTIC [Suspect]
     Indication: OCULAR HYPERTENSION
     Dosage: BID - 046
     Dates: start: 20100501, end: 20100613
  4. TIMOPTIC [Suspect]
     Indication: OPEN ANGLE GLAUCOMA
     Dosage: BID - 046
     Dates: start: 20100501, end: 20100613
  5. TAFLUPROST 0.0015% (MK-2452) [Suspect]
     Indication: OCULAR HYPERTENSION
     Dosage: 0.QD -046
     Dates: start: 20100415, end: 20100429
  6. TAFLUPROST 0.0015% (MK-2452) [Suspect]
     Indication: OPEN ANGLE GLAUCOMA
     Dosage: 0.QD -046
     Dates: start: 20100415, end: 20100429
  7. TAFLUPROST 0.0015% (MK-2452) [Suspect]
     Indication: OCULAR HYPERTENSION
     Dosage: 0.QD -046
     Dates: start: 20100501, end: 20100613
  8. TAFLUPROST 0.0015% (MK-2452) [Suspect]
     Indication: OPEN ANGLE GLAUCOMA
     Dosage: 0.QD -046
     Dates: start: 20100501, end: 20100613
  9. ATENOLOL [Concomitant]
  10. HYDROCODONE BITARTRATE [Concomitant]
  11. LISINOPRIL AND HYDROCHLOROTHIAZIDE [Concomitant]
  12. SIMVASTATIN [Concomitant]

REACTIONS (2)
  - FALL [None]
  - JOINT DISLOCATION [None]
